FAERS Safety Report 17301813 (Version 3)
Quarter: 2020Q1

REPORT INFORMATION
  Report Type: Spontaneous
  Country: JP (occurrence: JP)
  Receive Date: 20200122
  Receipt Date: 20200305
  Transmission Date: 20200409
  Serious: Yes (Hospitalization, Other)
  Sender: FDA-Public Use
  Company Number: JP-ASTRAZENECA-2020SE08639

PATIENT
  Age: 75 Year

DRUGS (1)
  1. IMFINZI [Suspect]
     Active Substance: DURVALUMAB
     Indication: NON-SMALL CELL LUNG CANCER
     Route: 041
     Dates: start: 20191205

REACTIONS (5)
  - Myasthenia gravis [Unknown]
  - Hepatic function abnormal [Recovering/Resolving]
  - Hypopituitarism [Unknown]
  - Hypothyroidism [Unknown]
  - Myositis [Unknown]

NARRATIVE: CASE EVENT DATE: 202001
